FAERS Safety Report 7254044-5 (Version None)
Quarter: 2011Q1

REPORT INFORMATION
  Report Type: 
  Country: None (occurrence: None)
  Receive Date: 20110129
  Receipt Date: 20100222
  Transmission Date: 20110831
  Serious: No
  Sender: FDA-Public Use
  Company Number: US-ABBOTT-10P-163-0628762-00

PATIENT
  Sex: Female
  Weight: 63.56 kg

DRUGS (3)
  1. HUMIRA [Suspect]
     Indication: PSORIASIS
     Route: 058
     Dates: start: 20080101, end: 20100101
  2. ALBUTEROL [Concomitant]
     Indication: PRODUCT USED FOR UNKNOWN INDICATION
  3. HUMIRA [Suspect]
     Route: 058
     Dates: start: 20100208

REACTIONS (2)
  - INFLUENZA [None]
  - PSORIASIS [None]
